FAERS Safety Report 4386149-0 (Version None)
Quarter: 2004Q2

REPORT INFORMATION
  Report Type: 
  Country: None (occurrence: None)
  Receive Date: 20040622
  Receipt Date: 20040609
  Transmission Date: 20050107
  Serious: Yes (Other)
  Sender: FDA-Public Use
  Company Number: 2004038650

PATIENT

DRUGS (2)
  1. NEURONTIN [Suspect]
     Indication: CONVULSION
  2. VALPROATE SODIUM [Concomitant]

REACTIONS (1)
  - CONVULSION [None]
